FAERS Safety Report 12602317 (Version 3)
Quarter: 2016Q3

REPORT INFORMATION
  Report Type: Spontaneous
  Country: US (occurrence: US)
  Receive Date: 20160728
  Receipt Date: 20160819
  Transmission Date: 20161109
  Serious: No
  Sender: FDA-Public Use
  Company Number: US-PFIZER INC-2016359233

PATIENT
  Age: 86 Year
  Sex: Female

DRUGS (2)
  1. IBRANCE [Suspect]
     Active Substance: PALBOCICLIB
     Dosage: 125 MG, DAILY (FOR 21 DAYS)
     Route: 048
     Dates: start: 20160725
  2. IBRANCE [Suspect]
     Active Substance: PALBOCICLIB
     Indication: BREAST CANCER
     Dosage: 125 MG, CYCLIC, (DAILY 21 DAYS ON, 7DAYS OFF)
     Route: 048

REACTIONS (3)
  - Alopecia [Unknown]
  - Sleep disorder [Unknown]
  - Headache [Unknown]

NARRATIVE: CASE EVENT DATE: 20160815
